FAERS Safety Report 6478243-5 (Version None)
Quarter: 2009Q4

REPORT INFORMATION
  Report Type: 
  Country: None (occurrence: None)
  Receive Date: 20091207
  Receipt Date: 20090128
  Transmission Date: 20100525
  Serious: No
  Sender: FDA-Public Use
  Company Number: US-AMGEN-KDL330702

PATIENT
  Sex: Male

DRUGS (1)
  1. ENBREL [Suspect]
     Indication: PSORIATIC ARTHROPATHY
     Route: 058
     Dates: start: 20031201

REACTIONS (17)
  - ABDOMINAL PAIN [None]
  - DYSPNOEA [None]
  - EYE INFECTION [None]
  - IMPAIRED HEALING [None]
  - INJECTION SITE PAIN [None]
  - LYMPHADENOPATHY [None]
  - LYMPHATIC OBSTRUCTION [None]
  - MUCOSAL EROSION [None]
  - MYALGIA [None]
  - NASAL MUCOSAL DISORDER [None]
  - OSTEITIS [None]
  - PLEURITIC PAIN [None]
  - PNEUMONIA BACTERIAL [None]
  - RHINITIS [None]
  - SINUS OPERATION [None]
  - TOOTH EXTRACTION [None]
  - WRIST SURGERY [None]
